FAERS Safety Report 20206302 (Version 1)
Quarter: 2021Q4

REPORT INFORMATION
  Report Type: Spontaneous
  Country: IT (occurrence: IT)
  Receive Date: 20211220
  Receipt Date: 20211220
  Transmission Date: 20220303
  Serious: Yes (Death)
  Sender: FDA-Public Use
  Company Number: None

PATIENT
  Age: 77 Year
  Sex: Female
  Weight: 85 kg

DRUGS (1)
  1. ACYCLOVIR [Suspect]
     Active Substance: ACYCLOVIR
     Indication: Product used for unknown indication
     Dosage: TOTAL
     Route: 065

REACTIONS (4)
  - Toxicity to various agents [Fatal]
  - Septic shock [Fatal]
  - Acute kidney injury [Fatal]
  - Skin ulcer [Fatal]

NARRATIVE: CASE EVENT DATE: 20211031
